FAERS Safety Report 8512905-0 (Version None)
Quarter: 2012Q3

REPORT INFORMATION
  Report Type: 
  Country: None (occurrence: None)
  Receive Date: 20120716
  Receipt Date: 20120709
  Transmission Date: 20120928
  Serious: Yes (Hospitalization, Other)
  Sender: FDA-Public Use
  Company Number: CA-TEVA-343647USA

PATIENT
  Sex: Male
  Weight: 80.1 kg

DRUGS (9)
  1. WARFARIN SODIUM [Concomitant]
     Route: 048
  2. HYDROXYZINE [Concomitant]
     Indication: PRURITUS
     Route: 048
     Dates: start: 20120312
  3. COLACE [Concomitant]
     Indication: CONSTIPATION
     Dosage: (1 TO 2 TABLETS AS NEEDED)
     Route: 048
     Dates: start: 20120313
  4. SENOKOT [Concomitant]
     Indication: CONSTIPATION
     Dosage: (1 TO 2 TABLETS AS NEEDED)
     Route: 048
     Dates: start: 20120313
  5. TREANDA [Suspect]
     Indication: NON-HODGKIN'S LYMPHOMA
     Route: 042
     Dates: start: 20120313, end: 20120314
  6. DEXAMETHASONE [Concomitant]
     Indication: PROPHYLAXIS OF NAUSEA AND VOMITING
     Route: 048
     Dates: start: 20120313, end: 20120703
  7. VALACICLOVIR [Concomitant]
     Indication: INFECTION PROPHYLAXIS
     Route: 048
     Dates: start: 20120313
  8. PROCHLORPERAZINE [Concomitant]
     Indication: PROPHYLAXIS OF NAUSEA AND VOMITING
     Route: 048
     Dates: start: 20120313
  9. PANTOPRAZOLE SODIUM [Concomitant]
     Indication: DYSPEPSIA
     Dosage: 1800 MILLIGRAM;
     Route: 048

REACTIONS (1)
  - PNEUMONIA [None]
